FAERS Safety Report 25530333 (Version 1)
Quarter: 2025Q3

REPORT INFORMATION
  Report Type: Spontaneous
  Country: US (occurrence: US)
  Receive Date: 20250708
  Receipt Date: 20250708
  Transmission Date: 20251021
  Serious: No
  Sender: SANOFI AVENTIS
  Company Number: US-SA-2025SA190629

PATIENT
  Age: 26 Year
  Sex: Female
  Weight: 61.36 kg

DRUGS (6)
  1. DUPIXENT [Suspect]
     Active Substance: DUPILUMAB
     Indication: Dermatitis atopic
     Dosage: 300 MG, QOW
     Route: 058
     Dates: end: 2025
  2. DUPIXENT [Suspect]
     Active Substance: DUPILUMAB
     Indication: Dermatitis allergic
     Dosage: 300 MG, QOW
     Route: 058
     Dates: start: 2025
  3. FIBER LAX [Concomitant]
     Active Substance: CALCIUM POLYCARBOPHIL
  4. SINGULAIR [Concomitant]
     Active Substance: MONTELUKAST SODIUM
  5. LORYNA [Concomitant]
     Active Substance: DROSPIRENONE\ETHINYL ESTRADIOL
  6. YELLOW FEVER VACCINE NOS [Concomitant]
     Active Substance: YELLOW FEVER VIRUS STRAIN 17D-204 LIVE ANTIGEN

REACTIONS (2)
  - Eye discharge [Recovered/Resolved]
  - Ocular hyperaemia [Recovered/Resolved]

NARRATIVE: CASE EVENT DATE: 20250301
